FAERS Safety Report 4896669-8 (Version None)
Quarter: 2006Q1

REPORT INFORMATION
  Report Type: 
  Country: None (occurrence: None)
  Receive Date: 20060131
  Receipt Date: 20060123
  Transmission Date: 20060701
  Serious: Yes (Hospitalization)
  Sender: FDA-Public Use
  Company Number: AU-ROCHE-433131

PATIENT
  Age: 76 Year
  Sex: Female

DRUGS (2)
  1. CEFTRIAXONE SODIUM [Suspect]
     Route: 065
     Dates: start: 20050215, end: 20050217
  2. AMPICILLIN SODIUM [Suspect]
     Route: 065
     Dates: start: 20050215, end: 20050217

REACTIONS (1)
  - PANCYTOPENIA [None]
